FAERS Safety Report 8254564-0 (Version None)
Quarter: 2012Q2

REPORT INFORMATION
  Report Type: 
  Country: None (occurrence: None)
  Receive Date: 20120403
  Receipt Date: 20090211
  Transmission Date: 20120825
  Serious: No
  Sender: FDA-Public Use
  Company Number: 2009BI004825

PATIENT
  Age: 28 Year
  Sex: Female

DRUGS (3)
  1. TYSABRI [Suspect]
     Indication: MULTIPLE SCLEROSIS
     Route: 042
     Dates: start: 20090122
  2. BACLOFEN [Concomitant]
     Indication: MUSCLE SPASMS
  3. BACLOFEN [Concomitant]
     Indication: RESTLESS LEGS SYNDROME

REACTIONS (4)
  - MULTIPLE SCLEROSIS RELAPSE [None]
  - PERIPHERAL COLDNESS [None]
  - INSOMNIA [None]
  - HEADACHE [None]
